FAERS Safety Report 5959739-9 (Version None)
Quarter: 2008Q4

REPORT INFORMATION
  Report Type: 
  Country: None (occurrence: None)
  Receive Date: 20081119
  Receipt Date: 20081119
  Transmission Date: 20090506
  Serious: Yes (Hospitalization)
  Sender: FDA-Public Use
  Company Number: None

PATIENT
  Age: 26 Year
  Sex: Male
  Weight: 60 kg

DRUGS (7)
  1. WARFARIN SODIUM [Suspect]
     Indication: THROMBOSIS
     Dosage: NA
  2. DIGOXIN [Concomitant]
  3. LISINOPRIL [Concomitant]
  4. CARVEDILOL [Concomitant]
  5. LANSOPRAZOLE [Concomitant]
  6. DILTIAZEM HCL [Concomitant]
  7. FUROSEMIDE [Concomitant]

REACTIONS (1)
  - INTERNATIONAL NORMALISED RATIO INCREASED [None]
